FAERS Safety Report 5927128-9 (Version None)
Quarter: 2008Q4

REPORT INFORMATION
  Report Type: 
  Country: None (occurrence: None)
  Receive Date: 20081022
  Receipt Date: 20081013
  Transmission Date: 20090506
  Serious: Yes (Death)
  Sender: FDA-Public Use
  Company Number: GB-PFIZER INC-2008086575

PATIENT
  Age: 18 Year
  Sex: Female
  Weight: 45 kg

DRUGS (5)
  1. PREDNISOLONE [Suspect]
     Indication: CHEMOTHERAPY
  2. DOXORUBICIN HYDROCHLORIDE [Suspect]
     Indication: CHEMOTHERAPY
  3. CYCLOPHOSPHAMIDE [Suspect]
     Indication: CHEMOTHERAPY
  4. VINCRISTINE [Suspect]
     Indication: CHEMOTHERAPY
  5. RITUXIMAB [Suspect]
     Indication: CHEMOTHERAPY

REACTIONS (1)
  - CYTOTOXIC CARDIOMYOPATHY [None]
